FAERS Safety Report 9515080 (Version 1)
Quarter: 2013Q1

REPORT INFORMATION
  Report Type: Spontaneous
  Country: US (occurrence: None)
  Receive Date: 20130305
  Receipt Date: 20130305
  Transmission Date: 20140127
  Serious: Yes (Other)
  Sender: FDA-Public Use
  Company Number: 163-21880-12121960

PATIENT
  Age: 57 Year
  Sex: Male
  Weight: 89.36 kg

DRUGS (5)
  1. REVLIMID [Suspect]
     Indication: PLASMA CELL MYELOMA
     Dosage: 25 MG, 1 IN 1 D, PO
     Route: 048
     Dates: start: 20120301
  2. VITAMIN B-3 WITH CALCIUM (VITAMIN B-COMPLEX, OTHER COMBINATIONS) (UNKNOWN) [Concomitant]
  3. NORTRIPTYLINE HCL (NORTRIPTYLINE HYDROCHLORIDE) (UNKNOWN)? [Concomitant]
  4. ZOMETA (ZOLEDRONIC ACID) (UNKNOWN) [Concomitant]
  5. LEVOXYL (LEVOTHROXINE SODIUM) (UNKNOWN) [Concomitant]

REACTIONS (1)
  - Neuropathy peripheral [None]
